FAERS Safety Report 18910907 (Version 1)
Quarter: 2021Q1

REPORT INFORMATION
  Report Type: Spontaneous
  Country: US (occurrence: US)
  Receive Date: 20210218
  Receipt Date: 20210218
  Transmission Date: 20210420
  Serious: No
  Sender: FDA-Public Use
  Company Number: US-PFIZER INC-2021139198

PATIENT
  Age: 58 Year
  Sex: Female

DRUGS (1)
  1. IBRANCE [Suspect]
     Active Substance: PALBOCICLIB
     Indication: BREAST CANCER FEMALE
     Dosage: 75 MG

REACTIONS (7)
  - Paraesthesia oral [Recovered/Resolved]
  - Paraesthesia [Unknown]
  - Fatigue [Recovered/Resolved]
  - Back pain [Unknown]
  - White blood cell count decreased [Unknown]
  - Bone pain [Unknown]
  - Alopecia [Recovered/Resolved]
